FAERS Safety Report 13522857 (Version 1)
Quarter: 2017Q2

REPORT INFORMATION
  Report Type: Spontaneous
  Country: US (occurrence: US)
  Receive Date: 20170508
  Receipt Date: 20170508
  Transmission Date: 20170830
  Serious: Yes (Other)
  Sender: FDA-Public Use
  Company Number: US-PFIZER INC-2017197013

PATIENT

DRUGS (1)
  1. XELJANZ [Suspect]
     Active Substance: TOFACITINIB CITRATE
     Dosage: UNK

REACTIONS (10)
  - Vaginal haemorrhage [Unknown]
  - Abdominal pain [Unknown]
  - Pain [Unknown]
  - Ovarian cyst [Unknown]
  - Injury [Unknown]
  - Fungal infection [Unknown]
  - Micturition disorder [Unknown]
  - Urinary tract infection [Unknown]
  - Fall [Unknown]
  - Infection [Unknown]
